FAERS Safety Report 17562111 (Version 1)
Quarter: 2020Q1

REPORT INFORMATION
  Report Type: Spontaneous
  Country: US (occurrence: US)
  Receive Date: 20200319
  Receipt Date: 20200319
  Transmission Date: 20200409
  Serious: Yes (Hospitalization, Other)
  Sender: FDA-Public Use
  Company Number: US-ABBVIE-20K-163-3327012-00

PATIENT

DRUGS (1)
  1. HUMIRA [Suspect]
     Active Substance: ADALIMUMAB
     Indication: PRODUCT USED FOR UNKNOWN INDICATION
     Route: 058

REACTIONS (7)
  - Surgery [Unknown]
  - Carpal tunnel syndrome [Unknown]
  - Pain [Unknown]
  - Feeling abnormal [Unknown]
  - Musculoskeletal pain [Unknown]
  - Arthralgia [Unknown]
  - Pain in extremity [Unknown]
